FAERS Safety Report 18496860 (Version 1)
Quarter: 2020Q4

REPORT INFORMATION
  Report Type: Spontaneous
  Country: US (occurrence: US)
  Receive Date: 20201112
  Receipt Date: 20201112
  Transmission Date: 20210114
  Serious: No
  Sender: FDA-Public Use
  Company Number: US-AMAG PHARMACEUTICALS, INC.-AMAG202003822

PATIENT
  Age: 69 Year
  Sex: Female

DRUGS (2)
  1. FERAHEME [Suspect]
     Active Substance: FERUMOXYTOL NON-STOICHIOMETRIC MAGNETITE
     Dosage: PATIENT RECEIVED TWO DOSES
     Route: 042
     Dates: start: 20201028
  2. FERAHEME [Suspect]
     Active Substance: FERUMOXYTOL NON-STOICHIOMETRIC MAGNETITE
     Indication: ANAEMIA
     Dosage: PATIENT RECEIVED TWO DOSES
     Route: 042
     Dates: end: 20201021

REACTIONS (3)
  - Swelling [Recovered/Resolved]
  - Extravasation [Not Recovered/Not Resolved]
  - Tissue discolouration [Not Recovered/Not Resolved]

NARRATIVE: CASE EVENT DATE: 20201028
